FAERS Safety Report 23986617 (Version 1)
Quarter: 2024Q2

REPORT INFORMATION
  Report Type: Spontaneous
  Country: US (occurrence: US)
  Receive Date: 20240618
  Receipt Date: 20240618
  Transmission Date: 20240716
  Serious: Yes (Other)
  Sender: FDA-Public Use
  Company Number: US-Merck Healthcare KGaA-2024031302

PATIENT
  Age: 36 Year
  Sex: Male

DRUGS (3)
  1. CETUXIMAB [Suspect]
     Active Substance: CETUXIMAB
     Indication: Squamous cell carcinoma of skin
     Dosage: 250 MG/M2, WEEKLY (1/W)
     Route: 065
  2. CARBOPLATIN [Suspect]
     Active Substance: CARBOPLATIN
     Indication: Squamous cell carcinoma of skin
     Dosage: TARGET AUC = 5 MG/ML/MIN MONTHLY; 15 CYCLES TOTAL
     Route: 065
  3. PEMBROLIZUMAB [Suspect]
     Active Substance: PEMBROLIZUMAB
     Indication: Squamous cell carcinoma of skin
     Dosage: UNK, UNKNOWN
     Route: 065

REACTIONS (3)
  - Colitis [Recovered/Resolved]
  - Dermatitis acneiform [Recovering/Resolving]
  - Off label use [Unknown]
